FAERS Safety Report 24822209 (Version 1)
Quarter: 2025Q1

REPORT INFORMATION
  Report Type: Spontaneous
  Country: US (occurrence: US)
  Receive Date: 20250108
  Receipt Date: 20250108
  Transmission Date: 20250408
  Serious: Yes (Other)
  Sender: MERCK
  Company Number: US-009507513-2501USA001453

PATIENT
  Age: 67 Year
  Sex: Male
  Weight: 81.451 kg

DRUGS (1)
  1. KEYTRUDA [Suspect]
     Active Substance: PEMBROLIZUMAB
     Indication: Metastatic squamous cell carcinoma
     Dosage: UNK, Q3W
     Dates: start: 20230912

REACTIONS (12)
  - Neuropathy peripheral [Not Recovered/Not Resolved]
  - Depression [Unknown]
  - Mastication disorder [Unknown]
  - Oral discomfort [Unknown]
  - Fatigue [Recovering/Resolving]
  - Hypertension [Not Recovered/Not Resolved]
  - Pain [Not Recovered/Not Resolved]
  - Gastrooesophageal reflux disease [Recovered/Resolved]
  - Arthralgia [Not Recovered/Not Resolved]
  - White blood cell count decreased [Unknown]
  - Musculoskeletal stiffness [Unknown]
  - Pulmonary mass [Unknown]

NARRATIVE: CASE EVENT DATE: 20231206
